APPROVED DRUG PRODUCT: TOLTERODINE TARTRATE
Active Ingredient: TOLTERODINE TARTRATE
Strength: 2MG
Dosage Form/Route: TABLET;ORAL
Application: A200164 | Product #002
Applicant: APOTEX CORP
Approved: Sep 25, 2012 | RLD: No | RS: No | Type: DISCN